FAERS Safety Report 9135556 (Version 1)
Quarter: 2013Q1

REPORT INFORMATION
  Report Type: Spontaneous
  Country: US (occurrence: US)
  Receive Date: 20130219
  Receipt Date: 20130219
  Transmission Date: 20140127
  Serious: No
  Sender: FDA-Public Use
  Company Number: US-BRISTOL-MYERS SQUIBB COMPANY-16766982

PATIENT
  Age: 56 Year
  Sex: Female
  Weight: 64.85 kg

DRUGS (2)
  1. ORENCIA [Suspect]
     Indication: RHEUMATOID ARTHRITIS
     Dosage: LAST DATE OF INFUSION:JUN2012.?DOSE:3 VIALS.
     Route: 042
  2. LISINOPRIL [Concomitant]

REACTIONS (2)
  - Pain [Not Recovered/Not Resolved]
  - Drug dose omission [Unknown]
